FAERS Safety Report 21704073 (Version 3)
Quarter: 2024Q4

REPORT INFORMATION
  Report Type: Spontaneous
  Country: SA (occurrence: SA)
  Receive Date: 20221209
  Receipt Date: 20241226
  Transmission Date: 20250114
  Serious: Yes (Life-Threatening, Hospitalization, Other)
  Sender: ALKEM
  Company Number: SA-ALKEM LABORATORIES LIMITED-SA-ALKEM-2022-12064

PATIENT
  Age: 4 Year
  Sex: Female

DRUGS (5)
  1. MYCOPHENOLATE MOFETIL [Suspect]
     Active Substance: MYCOPHENOLATE MOFETIL
     Indication: Nephrotic syndrome
     Dosage: 180 MILLIGRAM, BID (TWICE DAILY) (EVERY 0.5 DAY)
     Route: 065
  2. PREDNISOLONE [Suspect]
     Active Substance: PREDNISOLONE
     Indication: Nephrotic syndrome
     Dosage: 36 MILLIGRAM, EVERY ALTERNATE DAY
     Route: 065
  3. PREDNISOLONE [Suspect]
     Active Substance: PREDNISOLONE
     Dosage: 25 MILLIGRAM (PROPHYLACTIC ANTIBIOTIC)
     Route: 065
  4. RITUXIMAB [Suspect]
     Active Substance: RITUXIMAB
     Indication: Nephrotic syndrome
     Dosage: 375 MILLIGRAM/SQ. METER (SOLUTION FOR INFUSION)
     Route: 042
  5. ENALAPRIL [Concomitant]
     Active Substance: ENALAPRIL
     Indication: Nephrotic syndrome
     Dosage: 1.4 MILLIGRAM, OD (ONCE DAILY) (EVERY 1 DAY)
     Route: 065

REACTIONS (5)
  - Septic shock [Recovered/Resolved]
  - Pseudomonas infection [Recovered/Resolved]
  - Necrotising fasciitis [Recovered/Resolved]
  - Cellulitis [Recovered/Resolved]
  - Upper respiratory tract infection [Recovered/Resolved]
